FAERS Safety Report 22366007 (Version 1)
Quarter: 2023Q2

REPORT INFORMATION
  Report Type: Spontaneous
  Country: US (occurrence: US)
  Receive Date: 20230525
  Receipt Date: 20230525
  Transmission Date: 20230721
  Serious: Yes (Other)
  Sender: FDA-Public Use
  Company Number: US-GSK-US2023072935

PATIENT
  Sex: Female

DRUGS (1)
  1. BENLYSTA [Interacting]
     Active Substance: BELIMUMAB
     Indication: Product used for unknown indication
     Dosage: UNK (200 MG)
     Dates: start: 20230426

REACTIONS (2)
  - Cellulitis [Not Recovered/Not Resolved]
  - Malaise [Not Recovered/Not Resolved]
